FAERS Safety Report 5963622-2 (Version None)
Quarter: 2008Q4

REPORT INFORMATION
  Report Type: 
  Country: None (occurrence: None)
  Receive Date: 20081124
  Receipt Date: 20081111
  Transmission Date: 20090506
  Serious: Yes (Hospitalization)
  Sender: FDA-Public Use
  Company Number: US-ROCHE-550339

PATIENT
  Sex: Male
  Weight: 84.8 kg

DRUGS (11)
  1. PEG-INTERFERON ALFA 2A (RO 25-8310) [Suspect]
     Dosage: DOSE BLINDED.
     Route: 058
     Dates: start: 20071018, end: 20080215
  2. PEG-INTERFERON ALFA 2A (RO 25-8310) [Suspect]
     Route: 058
     Dates: start: 20080305
  3. RIBAVIRIN [Suspect]
     Dosage: DOSE BLINDED.
     Route: 048
     Dates: start: 20071018, end: 20080215
  4. RIBAVIRIN [Suspect]
     Dosage: DOSE: BLINDED.
     Route: 048
     Dates: start: 20080305
  5. FIBER NOS [Concomitant]
     Dosage: TDD REPORTED AS 2 TSP.
     Dates: start: 20061001
  6. ZOLOFT [Concomitant]
     Dates: start: 20061219
  7. GLUCOPHAGE XR [Concomitant]
     Dates: start: 20070501
  8. AMARYL [Concomitant]
     Dates: start: 20070809
  9. EXCEDRIN [Concomitant]
  10. TYLENOL (CAPLET) [Concomitant]
     Dates: start: 20071018
  11. BENADRYL [Concomitant]
     Dates: start: 20071018

REACTIONS (2)
  - GASTROENTERITIS [None]
  - PNEUMONIA [None]
